FAERS Safety Report 12413476 (Version 1)
Quarter: 2016Q2

REPORT INFORMATION
  Report Type: Spontaneous
  Country: AU (occurrence: AU)
  Receive Date: 20160527
  Receipt Date: 20160527
  Transmission Date: 20160815
  Serious: Yes (Death, Other)
  Sender: FDA-Public Use
  Company Number: AU-JNJFOC-20160520813

PATIENT
  Age: 32 Year
  Sex: Female

DRUGS (7)
  1. OXYCODONE [Suspect]
     Active Substance: OXYCODONE
     Indication: COMPLETED SUICIDE
     Route: 065
  2. LORATADINE. [Suspect]
     Active Substance: LORATADINE
     Indication: COMPLETED SUICIDE
     Route: 065
  3. METOCLOPRAMIDE. [Suspect]
     Active Substance: METOCLOPRAMIDE
     Indication: COMPLETED SUICIDE
     Route: 065
  4. TOPIRAMATE. [Suspect]
     Active Substance: TOPIRAMATE
     Indication: COMPLETED SUICIDE
     Route: 048
  5. LORAZEPAM. [Suspect]
     Active Substance: LORAZEPAM
     Indication: COMPLETED SUICIDE
     Route: 065
  6. QUETIAPINE. [Suspect]
     Active Substance: QUETIAPINE
     Indication: COMPLETED SUICIDE
     Route: 065
  7. VENLAFAXINE [Suspect]
     Active Substance: VENLAFAXINE HYDROCHLORIDE
     Indication: COMPLETED SUICIDE
     Route: 065

REACTIONS (6)
  - Toxicity to various agents [Fatal]
  - Obstructive airways disorder [Fatal]
  - Bezoar [Fatal]
  - Off label use [Unknown]
  - Overdose [Unknown]
  - Product use issue [Unknown]
